FAERS Safety Report 12665690 (Version 2)
Quarter: 2016Q3

REPORT INFORMATION
  Report Type: Not Available
  Country: US (occurrence: US)
  Receive Date: 20160818
  Receipt Date: 20160902
  Transmission Date: 20161109
  Serious: No
  Sender: FDA-Public Use
  Company Number: US-3M-2016-US-006285

PATIENT
  Sex: Female

DRUGS (1)
  1. CLINPRO 5000 [Suspect]
     Active Substance: SODIUM FLUORIDE
     Dosage: UNKNOWN
     Route: 004

REACTIONS (1)
  - Unevaluable event [Unknown]
